FAERS Safety Report 12681645 (Version 1)
Quarter: 2016Q3

REPORT INFORMATION
  Report Type: Spontaneous
  Country: CN (occurrence: CN)
  Receive Date: 20160824
  Receipt Date: 20160824
  Transmission Date: 20161109
  Serious: Yes (Life-Threatening, Other)
  Sender: FDA-Public Use
  Company Number: CN-FRESENIUS KABI-FK201605674

PATIENT
  Age: 53 Year
  Sex: Male

DRUGS (5)
  1. SUFENTANIL CITRATE. [Concomitant]
     Active Substance: SUFENTANIL CITRATE
     Indication: ANALGESIC THERAPY
     Route: 042
     Dates: start: 20160310, end: 20160310
  2. CISATRACURIUM BESILATE [Suspect]
     Active Substance: CISATRACURIUM BESYLATE
     Indication: HYPOTONIA
     Route: 042
     Dates: start: 20160310, end: 20160310
  3. DEXAMETHASONE SODIUM [Concomitant]
     Indication: ANTIALLERGIC THERAPY
     Route: 042
     Dates: start: 20160310, end: 20160310
  4. PROPOFOL MCT FRESENIUS (NOT SPECIFIED) [Suspect]
     Active Substance: PROPOFOL
     Indication: INDUCTION OF ANAESTHESIA
     Route: 042
     Dates: start: 20160310, end: 20160310
  5. RHYTHIM [Concomitant]
     Indication: SEDATION
     Route: 042
     Dates: start: 20160310, end: 20160310

REACTIONS (1)
  - Anaphylactic shock [Recovering/Resolving]

NARRATIVE: CASE EVENT DATE: 20160310
